FAERS Safety Report 11782072 (Version 1)
Quarter: 2015Q4

REPORT INFORMATION
  Report Type: Spontaneous
  Country: US (occurrence: US)
  Receive Date: 20151126
  Receipt Date: 20151126
  Transmission Date: 20160305
  Serious: No
  Sender: FDA-Public Use
  Company Number: US-009507513-1511USA014748

PATIENT
  Sex: Male

DRUGS (1)
  1. NOXAFIL [Suspect]
     Active Substance: POSACONAZOLE
     Indication: MYELODYSPLASTIC SYNDROME
     Dosage: 1 TABLET (100 MG), 3 TIMES DAILY
     Route: 048
     Dates: start: 201504, end: 2015

REACTIONS (5)
  - Weight decreased [Recovered/Resolved]
  - Motion sickness [Recovered/Resolved]
  - Vomiting [Recovered/Resolved]
  - Nausea [Recovered/Resolved]
  - Diarrhoea [Recovered/Resolved]

NARRATIVE: CASE EVENT DATE: 2015
